FAERS Safety Report 9216606 (Version 1)
Quarter: 2013Q2

REPORT INFORMATION
  Report Type: Spontaneous
  Country: US (occurrence: None)
  Receive Date: 20130403
  Receipt Date: 20130403
  Transmission Date: 20140414
  Serious: Yes (Hospitalization)
  Sender: FDA-Public Use
  Company Number: CLCY20130060

PATIENT
  Age: 7 Decade
  Sex: Male

DRUGS (1)
  1. COLCRYS [Suspect]
     Indication: GOUT
     Route: 048
     Dates: start: 2013, end: 2013

REACTIONS (7)
  - Renal failure acute [None]
  - Dehydration [None]
  - Aphagia [None]
  - Fluid intake reduced [None]
  - Diarrhoea [None]
  - Abdominal pain [None]
  - Gastrointestinal disorder [None]
